FAERS Safety Report 12226058 (Version 1)
Quarter: 2016Q1

REPORT INFORMATION
  Report Type: Spontaneous
  Country: US (occurrence: US)
  Receive Date: 20160331
  Receipt Date: 20160331
  Transmission Date: 20160526
  Serious: No
  Sender: FDA-Public Use
  Company Number: US-PFIZER INC-2016144383

PATIENT
  Age: 67 Year
  Sex: Female

DRUGS (1)
  1. LIPITOR [Suspect]
     Active Substance: ATORVASTATIN CALCIUM
     Indication: CEREBROVASCULAR ACCIDENT
     Dosage: 40 MG, 1X/DAY
     Dates: start: 20160302, end: 20160304

REACTIONS (2)
  - Pain in extremity [Unknown]
  - Myalgia [Unknown]

NARRATIVE: CASE EVENT DATE: 20160302
